FAERS Safety Report 5938998-2 (Version None)
Quarter: 2008Q4

REPORT INFORMATION
  Report Type: 
  Country: None (occurrence: None)
  Receive Date: 20081103
  Receipt Date: 20080324
  Transmission Date: 20090506
  Serious: No
  Sender: FDA-Public Use
  Company Number: US-BAYER-200811338BCC

PATIENT
  Age: 86 Year
  Sex: Male
  Weight: 77 kg

DRUGS (15)
  1. ALEVE [Suspect]
     Indication: PENILE PAIN
     Dosage: UNIT DOSE: 220 MG
     Route: 048
     Dates: start: 20080324, end: 20080324
  2. LOVENOX 40 [Concomitant]
  3. M.V.I. [Concomitant]
  4. ASPIRIN [Concomitant]
  5. FOLIC ACID [Concomitant]
  6. ATENOLOL [Concomitant]
  7. MIDODRINE 5MG [Concomitant]
  8. MIRTAZAPINE [Concomitant]
  9. ZOCOR [Concomitant]
  10. HYDROXYUREA [Concomitant]
  11. BUSPIRONE HCL [Concomitant]
  12. AVODART [Concomitant]
  13. CITALOPRAM HYDROBROMIDE [Concomitant]
  14. GABAPENTIN [Concomitant]
  15. AMBIEN [Concomitant]

REACTIONS (1)
  - NAUSEA [None]
